FAERS Safety Report 7734449-6 (Version None)
Quarter: 2011Q3

REPORT INFORMATION
  Report Type: 
  Country: None (occurrence: None)
  Receive Date: 20110901
  Receipt Date: 20110823
  Transmission Date: 20111222
  Serious: Yes (Hospitalization, Other)
  Sender: FDA-Public Use
  Company Number: TPA2011A00744

PATIENT
  Age: 73 Year
  Sex: Male

DRUGS (10)
  1. LEVEMIR [Concomitant]
  2. IRON SUPPLEMENT (IRON) [Concomitant]
  3. CHLORTHALIDONE [Concomitant]
  4. LIPITOR [Concomitant]
  5. NORVASC [Concomitant]
  6. DIOVAN [Concomitant]
  7. ASPIRIN [Concomitant]
  8. NOVOLOG [Concomitant]
  9. ACTOS [Suspect]
     Dosage: 30 MG, 1 IN 1 D
     Dates: end: 20110101
  10. LANTUS [Concomitant]

REACTIONS (5)
  - COLON CANCER [None]
  - ANAEMIA [None]
  - RECTAL HAEMORRHAGE [None]
  - ASTHENIA [None]
  - PERIPHERAL VASCULAR DISORDER [None]
